FAERS Safety Report 25244720 (Version 1)
Quarter: 2025Q2

REPORT INFORMATION
  Report Type: Spontaneous
  Country: US (occurrence: US)
  Receive Date: 20250428
  Receipt Date: 20250428
  Transmission Date: 20250717
  Serious: Yes (Other)
  Sender: GLAXOSMITHKLINE
  Company Number: US-GSK-US2025AMR049659

PATIENT
  Age: 35 Year
  Sex: Female

DRUGS (3)
  1. LAMICTAL [Suspect]
     Active Substance: LAMOTRIGINE
     Indication: Product used for unknown indication
  2. LAMICTAL [Suspect]
     Active Substance: LAMOTRIGINE
     Dates: start: 202501
  3. ZONEGRAN [Suspect]
     Active Substance: ZONISAMIDE
     Indication: Product used for unknown indication

REACTIONS (4)
  - Seizure [Unknown]
  - Brain fog [Unknown]
  - Disturbance in attention [Unknown]
  - Lymphadenopathy [Unknown]

NARRATIVE: CASE EVENT DATE: 20250305
